FAERS Safety Report 18955640 (Version 1)
Quarter: 2021Q1

REPORT INFORMATION
  Report Type: Spontaneous
  Country: CN (occurrence: CN)
  Receive Date: 20210301
  Receipt Date: 20210301
  Transmission Date: 20210420
  Serious: Yes (Hospitalization)
  Sender: FDA-Public Use
  Company Number: CN-PFIZER INC-2021187409

PATIENT
  Age: 8 Year
  Sex: Male
  Weight: 20 kg

DRUGS (8)
  1. SODIUM CHLORIDE 0.9% [Suspect]
     Active Substance: SODIUM CHLORIDE
     Indication: VEHICLE SOLUTION USE
     Dosage: 20 ML, 1X/DAY
     Route: 042
     Dates: start: 20210216, end: 20210216
  2. METHOTREXATE. [Suspect]
     Active Substance: METHOTREXATE
     Indication: CHEMOTHERAPY
     Dosage: 12 MG, 1X/DAY
     Route: 037
     Dates: start: 20210216, end: 20210217
  3. SODIUM CHLORIDE 0.9% [Suspect]
     Active Substance: SODIUM CHLORIDE
     Indication: VEHICLE SOLUTION USE
     Dosage: 100 ML, 1X/DAY
     Route: 041
     Dates: start: 20210216, end: 20210216
  4. SODIUM CHLORIDE 0.9% [Concomitant]
     Active Substance: SODIUM CHLORIDE
     Indication: VEHICLE SOLUTION USE
     Dosage: 6 ML, 1X/DAY
     Route: 037
     Dates: start: 20210216, end: 20210216
  5. DEXAMETHASONE SODIUM PHOSPHATE. [Concomitant]
     Active Substance: DEXAMETHASONE SODIUM PHOSPHATE
     Indication: CHEMOTHERAPY
     Dosage: 4 MG, 1X/DAY
     Route: 037
     Dates: start: 20210216, end: 20210217
  6. VINCRISTINE SULFATE. [Suspect]
     Active Substance: VINCRISTINE SULFATE
     Indication: CHEMOTHERAPY
     Dosage: 1.2 MG, 1X/DAY
     Route: 042
     Dates: start: 20210216, end: 20210216
  7. DAUNORUBICIN HYDROCHLORIDE. [Suspect]
     Active Substance: DAUNORUBICIN HYDROCHLORIDE
     Indication: CHEMOTHERAPY
     Dosage: 24 MG, 1X/DAY
     Route: 041
     Dates: start: 20210216, end: 20210216
  8. CYTOSAR [Suspect]
     Active Substance: CYTARABINE
     Indication: CHEMOTHERAPY
     Dosage: 0.024 G, 1X/DAY
     Route: 037
     Dates: start: 20210216, end: 20210216

REACTIONS (1)
  - Blood fibrinogen decreased [Unknown]

NARRATIVE: CASE EVENT DATE: 20210217
